FAERS Safety Report 18303819 (Version 1)
Quarter: 2020Q3

REPORT INFORMATION
  Report Type: Spontaneous
  Country: US (occurrence: CA)
  Receive Date: 20200923
  Receipt Date: 20200923
  Transmission Date: 20201103
  Serious: Yes (Disabling, Other)
  Sender: FDA-Public Use
  Company Number: US-BAYER-2020-193990

PATIENT
  Sex: Female

DRUGS (1)
  1. CIPROFLOXACIN. [Suspect]
     Active Substance: CIPROFLOXACIN
     Indication: URINARY TRACT INFECTION
     Dosage: UNK UNK, QD
     Route: 048

REACTIONS (3)
  - Sjogren^s syndrome [Not Recovered/Not Resolved]
  - Antinuclear antibody [Not Recovered/Not Resolved]
  - Neuropathy peripheral [Not Recovered/Not Resolved]
